FAERS Safety Report 10421237 (Version 1)
Quarter: 2014Q3

REPORT INFORMATION
  Report Type: Spontaneous
  Country: AU (occurrence: AU)
  Receive Date: 20140830
  Receipt Date: 20140830
  Transmission Date: 20150326
  Serious: Yes (Disabling)
  Sender: FDA-Public Use
  Company Number: AU-009507513-1408AUS016030

PATIENT

DRUGS (2)
  1. CELESTONE [Suspect]
     Active Substance: BETAMETHASONE
  2. DEXAMETHASONE. [Concomitant]
     Active Substance: DEXAMETHASONE

REACTIONS (2)
  - Hypoaesthesia [Unknown]
  - Hypokinesia [Unknown]
